FAERS Safety Report 21457578 (Version 2)
Quarter: 2024Q4

REPORT INFORMATION
  Report Type: Report from Study
  Country: US (occurrence: US)
  Receive Date: 20221014
  Receipt Date: 20241127
  Transmission Date: 20250115
  Serious: Yes (Hospitalization, Other)
  Sender: UCB
  Company Number: US-UCBSA-2022059872

PATIENT
  Age: 22 Year
  Sex: Male
  Weight: 65.8 kg

DRUGS (1)
  1. FINTEPLA [Suspect]
     Active Substance: FENFLURAMINE
     Indication: Product used for unknown indication
     Dosage: 6 MILLILITER, 2X/DAY (BID)

REACTIONS (2)
  - Nasal septal operation [Recovered/Resolved]
  - Nasal septum disorder [Unknown]

NARRATIVE: CASE EVENT DATE: 20221010
